FAERS Safety Report 6534349-3 (Version None)
Quarter: 2010Q1

REPORT INFORMATION
  Report Type: 
  Country: None (occurrence: None)
  Receive Date: 20100108
  Receipt Date: 20100108
  Transmission Date: 20100710
  Serious: Yes (Life-Threatening, Hospitalization)
  Sender: FDA-Public Use
  Company Number: None

PATIENT
  Age: 32 Year
  Sex: Male
  Weight: 68.0396 kg

DRUGS (1)
  1. CHANTIX [Suspect]
     Indication: SMOKING CESSATION THERAPY
     Dosage: 1 MG TWICE DAILY PO
     Route: 048
     Dates: start: 20091105, end: 20091223

REACTIONS (15)
  - AFFECTIVE DISORDER [None]
  - ALCOHOL USE [None]
  - CRYING [None]
  - DEPRESSION [None]
  - FEELING ABNORMAL [None]
  - FLAT AFFECT [None]
  - GRANDIOSITY [None]
  - IMPRISONMENT [None]
  - IMPULSIVE BEHAVIOUR [None]
  - IRRITABILITY [None]
  - MANIA [None]
  - SOMNOLENCE [None]
  - SUICIDAL BEHAVIOUR [None]
  - SUICIDAL IDEATION [None]
  - SUICIDE ATTEMPT [None]
